FAERS Safety Report 9518147 (Version 3)
Quarter: 2014Q1

REPORT INFORMATION
  Report Type: Spontaneous
  Country: DE (occurrence: DE)
  Receive Date: 20130912
  Receipt Date: 20140113
  Transmission Date: 20141002
  Serious: Yes (Death, Hospitalization)
  Sender: FDA-Public Use
  Company Number: DE-JNJFOC-20130905194

PATIENT
  Age: 68 Year
  Sex: Male
  Weight: 75 kg

DRUGS (5)
  1. XARELTO [Suspect]
     Indication: EMBOLISM VENOUS
     Route: 048
     Dates: end: 20130712
  2. XARELTO [Suspect]
     Indication: THROMBOSIS
     Route: 048
     Dates: end: 20130712
  3. ESOMEPRAZOLE [Suspect]
     Indication: PRODUCT USED FOR UNKNOWN INDICATION
     Dosage: (500/20)
     Route: 048
     Dates: end: 20130712
  4. TORASEMID [Concomitant]
     Indication: HYPERTENSION
     Route: 048
     Dates: end: 20130712
  5. PRAVASTATIN [Concomitant]
     Indication: HYPERLIPIDAEMIA
     Route: 048
     Dates: end: 20130711

REACTIONS (6)
  - Traumatic haematoma [Fatal]
  - Chest injury [Fatal]
  - Fall [Fatal]
  - Multi-organ failure [Fatal]
  - Haemorrhage [Unknown]
  - Subcutaneous haematoma [Unknown]
